FAERS Safety Report 22162144 (Version 1)
Quarter: 2023Q1

REPORT INFORMATION
  Report Type: Spontaneous
  Country: US (occurrence: US)
  Receive Date: 20230331
  Receipt Date: 20230331
  Transmission Date: 20230417
  Serious: No
  Sender: FDA-Public Use
  Company Number: US-ABBVIE-4711706

PATIENT
  Age: 42 Year
  Sex: Male
  Weight: 72 kg

DRUGS (5)
  1. VENETOCLAX [Suspect]
     Active Substance: VENETOCLAX
     Indication: Chronic lymphocytic leukaemia
     Route: 048
     Dates: start: 202303, end: 202303
  2. VENETOCLAX [Suspect]
     Active Substance: VENETOCLAX
     Indication: Chronic lymphocytic leukaemia
     Dosage: LAST ADMIN DATE: 2023
     Route: 048
     Dates: start: 202302
  3. VENETOCLAX [Suspect]
     Active Substance: VENETOCLAX
     Indication: Chronic lymphocytic leukaemia
     Dosage: FORM STRENGTH: 100MILLIGRAM
     Route: 048
     Dates: start: 202303
  4. DULOXETINE [Concomitant]
     Active Substance: DULOXETINE
     Indication: Pain in extremity
  5. FOLIC ACID [Concomitant]
     Active Substance: FOLIC ACID
     Indication: Product used for unknown indication

REACTIONS (4)
  - Renal disorder [Recovering/Resolving]
  - Renal pain [Recovered/Resolved]
  - Intentional product misuse [Recovered/Resolved]
  - Blood urine present [Unknown]

NARRATIVE: CASE EVENT DATE: 20230301
